FAERS Safety Report 24461785 (Version 1)
Quarter: 2024Q4

REPORT INFORMATION
  Report Type: Spontaneous
  Country: US (occurrence: None)
  Receive Date: 20241018
  Receipt Date: 20241018
  Transmission Date: 20250115
  Serious: Yes (Other)
  Sender: Public
  Company Number: None

PATIENT
  Age: 82 Year
  Sex: Male
  Weight: 74.25 kg

DRUGS (4)
  1. PARODONTAX [Suspect]
     Active Substance: STANNOUS FLUORIDE
     Indication: Dental plaque
     Dosage: OTHER QUANTITY : 3.4 02;?FREQUENCY : TWICE A DAY;?OTHER ROUTE : BRUSH YOUR TEETH TWICE A DAY;?
     Route: 050
     Dates: start: 202408, end: 20240915
  2. VITAMIN C [Concomitant]
     Active Substance: ASCORBIC ACID
  3. Vitamin D [Concomitant]
  4. FISH OIL [Concomitant]
     Active Substance: FISH OIL

REACTIONS (3)
  - Swollen tongue [None]
  - Tongue discomfort [None]
  - Aphthous ulcer [None]

NARRATIVE: CASE EVENT DATE: 20240803
